FAERS Safety Report 8183177-4 (Version None)
Quarter: 2012Q1

REPORT INFORMATION
  Report Type: 
  Country: None (occurrence: None)
  Receive Date: 20120127
  Receipt Date: 20111103
  Transmission Date: 20120608
  Serious: Yes (Hospitalization)
  Sender: FDA-Public Use
  Company Number: AMAG201100222

PATIENT
  Age: 58 Year
  Sex: Female
  Weight: 132.9 kg

DRUGS (26)
  1. AMBIEN [Concomitant]
  2. FOLIC ACID [Concomitant]
  3. TRICOR [Concomitant]
  4. FERAHEME [Suspect]
     Indication: RENAL FAILURE CHRONIC
     Dosage: 510MG, SINGLE, IV BOLUS
     Route: 040
     Dates: start: 20111025, end: 20111025
  5. FERAHEME [Suspect]
     Indication: IRON DEFICIENCY ANAEMIA
     Dosage: 510MG, SINGLE, IV BOLUS
     Route: 040
     Dates: start: 20111025, end: 20111025
  6. FLEXERIL [Concomitant]
  7. PERCOCET [Concomitant]
  8. MIRALAX [Concomitant]
  9. METFORMIN HYDROCHLORIDE [Concomitant]
  10. ADVAIR DISKUS (FLUTICASONE PROPIONATE, SALMETEROL XINAFOATE) [Concomitant]
  11. ALLOPURINOL [Concomitant]
  12. BUMEX [Concomitant]
  13. FLONASE [Concomitant]
  14. VERAPAMIL HYDROCHLORIDE [Concomitant]
  15. ZETIA [Concomitant]
  16. ALBUTEROL [Concomitant]
  17. LASIX [Concomitant]
  18. SYNTHROID [Concomitant]
  19. NAPROXEN (ALEVE) [Concomitant]
  20. HYDROCHLOROTHIAZIDE [Concomitant]
  21. NEURONTIN [Concomitant]
  22. GLIPIZIDE [Concomitant]
  23. PREMARIN [Concomitant]
  24. FENTANYL [Concomitant]
  25. XANAX [Concomitant]
  26. LEXAPRO [Concomitant]

REACTIONS (1)
  - HYPERSENSITIVITY [None]
